FAERS Safety Report 8994143 (Version 1)
Quarter: 2013Q1

REPORT INFORMATION
  Report Type: Spontaneous
  Country: US (occurrence: US)
  Receive Date: 20130102
  Receipt Date: 20130102
  Transmission Date: 20140127
  Serious: No
  Sender: FDA-Public Use
  Company Number: US-AMGEN-USASP2012080511

PATIENT
  Age: 58 Year
  Sex: Male
  Weight: 131.97 kg

DRUGS (1)
  1. ENBREL [Suspect]
     Indication: PSORIATIC ARTHROPATHY
     Dosage: 50 MG, QWK
     Dates: start: 20120921, end: 20121211

REACTIONS (4)
  - Skin fissures [Unknown]
  - Skin haemorrhage [Not Recovered/Not Resolved]
  - Skin exfoliation [Unknown]
  - Drug ineffective [Recovered/Resolved]
